FAERS Safety Report 10495732 (Version 1)
Quarter: 2014Q4

REPORT INFORMATION
  Report Type: Spontaneous
  Country: US (occurrence: US)
  Receive Date: 20141003
  Receipt Date: 20141003
  Transmission Date: 20150528
  Serious: Yes (Other)
  Sender: FDA-Public Use
  Company Number: US-BRISTOL-MYERS SQUIBB COMPANY-21430566

PATIENT
  Age: 71 Year
  Sex: Male
  Weight: 105.21 kg

DRUGS (8)
  1. LISINOPRIL. [Concomitant]
     Active Substance: LISINOPRIL
  2. WARFARIN SODIUM. [Suspect]
     Active Substance: WARFARIN SODIUM
     Indication: ATRIAL FIBRILLATION
     Dosage: DOSE INCREASED FROM 6MG TO 9MG.
     Route: 048
  3. HYDROCHLOROTHIAZIDE. [Concomitant]
     Active Substance: HYDROCHLOROTHIAZIDE
  4. LEVOTHYROXINE [Concomitant]
     Active Substance: LEVOTHYROXINE
  5. VALSARTAN. [Concomitant]
     Active Substance: VALSARTAN
  6. VITAMIN D3 [Concomitant]
     Active Substance: CHOLECALCIFEROL
  7. METOPROLOL [Concomitant]
     Active Substance: METOPROLOL
  8. TENAXIL [Concomitant]

REACTIONS (5)
  - International normalised ratio fluctuation [Unknown]
  - Thyroid disorder [Unknown]
  - Joint injury [Unknown]
  - Prothrombin time prolonged [Unknown]
  - Haematoma [Unknown]

NARRATIVE: CASE EVENT DATE: 201402
